FAERS Safety Report 4569624-5 (Version None)
Quarter: 2005Q1

REPORT INFORMATION
  Report Type: 
  Country: None (occurrence: None)
  Receive Date: 20050201
  Receipt Date: 20050119
  Transmission Date: 20050727
  Serious: Yes (Death, Hospitalization)
  Sender: FDA-Public Use
  Company Number: HQWYE529711JAN05

PATIENT
  Age: 75 Year
  Sex: Male

DRUGS (5)
  1. CORDARONE [Suspect]
     Dosage: 200 MG 1X PER 1 DAY ORAL
     Route: 048
     Dates: end: 20041217
  2. CLINOMEL (AMINO ACIDS/CARBOHYDRATES/MINERALS/VITAMINS,) [Suspect]
     Dosage: 2 L 1X PER 1 DAY INTRAVENOUS
     Route: 042
     Dates: start: 20041213, end: 20041218
  3. OMEPRAZOLE [Suspect]
     Dosage: 20 MG 1X PER 1 DAY ORAL
     Route: 048
     Dates: start: 20040102, end: 20041217
  4. PREVISCAN (FLUINDIONE,) [Suspect]
     Dosage: 75 MG 1X PER 1 DAY ORAL
     Route: 048
     Dates: end: 20041217
  5. PROZAC [Suspect]
     Dosage: 20 MG 1X PER 1 DAY ORAL
     Route: 048
     Dates: end: 20041217

REACTIONS (15)
  - ASCITES [None]
  - CELL DEATH [None]
  - CHOLESTASIS [None]
  - CYTOLYTIC HEPATITIS [None]
  - CYTOMEGALOVIRUS ANTIBODY POSITIVE [None]
  - FACE OEDEMA [None]
  - HEPATITIS FULMINANT [None]
  - HERPES SIMPLEX SEROLOGY POSITIVE [None]
  - HYPOALBUMINAEMIA [None]
  - HYPONATRAEMIA [None]
  - MALNUTRITION [None]
  - MULTI-ORGAN FAILURE [None]
  - OEDEMA [None]
  - OEDEMA PERIPHERAL [None]
  - RENAL FAILURE [None]
